FAERS Safety Report 7471916-7 (Version None)
Quarter: 2011Q2

REPORT INFORMATION
  Report Type: 
  Country: None (occurrence: None)
  Receive Date: 20110511
  Receipt Date: 20100714
  Transmission Date: 20111010
  Serious: No
  Sender: FDA-Public Use
  Company Number: A0870431A

PATIENT
  Age: 44 Year
  Sex: Female

DRUGS (6)
  1. DECADRON [Concomitant]
  2. PROTONIX [Concomitant]
  3. ASPIRIN [Concomitant]
  4. TYKERB [Suspect]
     Indication: BREAST CANCER
     Dosage: 5TAB PER DAY
     Route: 048
     Dates: start: 20100501, end: 20100615
  5. FENTANYL [Concomitant]
  6. PROZAC [Concomitant]

REACTIONS (1)
  - DIARRHOEA [None]
